FAERS Safety Report 6783662-3 (Version None)
Quarter: 2010Q2

REPORT INFORMATION
  Report Type: 
  Country: None (occurrence: None)
  Receive Date: 20100622
  Receipt Date: 20100510
  Transmission Date: 20101027
  Serious: No
  Sender: FDA-Public Use
  Company Number: US-BAXTER-2010BH004013

PATIENT
  Sex: Female
  Weight: 102 kg

DRUGS (10)
  1. HEPARIN SODIUM [Suspect]
     Indication: MYOCARDIAL INFARCTION
     Route: 058
     Dates: start: 19951206, end: 19951212
  2. HEPARIN SODIUM [Suspect]
     Indication: DRUG USE FOR UNKNOWN INDICATION
     Route: 058
     Dates: start: 19951206, end: 19951212
  3. HEPARIN SODIUM [Suspect]
     Route: 042
     Dates: start: 19991008, end: 19991008
  4. HEPARIN SODIUM [Suspect]
     Route: 042
     Dates: start: 19991008, end: 19991008
  5. HEPARIN SODIUM [Suspect]
     Route: 042
     Dates: start: 19991009, end: 19991009
  6. HEPARIN SODIUM [Suspect]
     Route: 042
     Dates: start: 19991009, end: 19991009
  7. HEPARIN SODIUM [Suspect]
     Route: 042
     Dates: start: 19991010, end: 19991010
  8. HEPARIN SODIUM [Suspect]
     Route: 042
     Dates: start: 19991010, end: 19991010
  9. HEPARIN SODIUM 5,000 UNITS IN DEXTROSE 5% [Suspect]
     Indication: DRUG USE FOR UNKNOWN INDICATION
     Route: 041
     Dates: start: 19991008, end: 19991011
  10. ACETAMINOPHEN [Concomitant]
     Indication: DRUG USE FOR UNKNOWN INDICATION
     Route: 065

REACTIONS (1)
  - ADVERSE EVENT [None]
